FAERS Safety Report 13006515 (Version 1)
Quarter: 2016Q4

REPORT INFORMATION
  Report Type: Report from Study
  Country: CN (occurrence: CN)
  Receive Date: 20161207
  Receipt Date: 20161207
  Transmission Date: 20170207
  Serious: Yes (Hospitalization)
  Sender: FDA-Public Use
  Company Number: CN-ELI_LILLY_AND_COMPANY-CN201611009374

PATIENT
  Age: 77 Year
  Sex: Female
  Weight: 45 kg

DRUGS (4)
  1. INSULIN, LISPRO [Suspect]
     Active Substance: INSULIN LISPRO
     Dosage: 7 U, EACH EVENING
     Route: 058
     Dates: start: 201304
  2. ACARBOSE. [Concomitant]
     Active Substance: ACARBOSE
     Dosage: UNK, QD
  3. ACARBOSE. [Concomitant]
     Active Substance: ACARBOSE
     Dosage: UNK, TID
  4. INSULIN, LISPRO [Suspect]
     Active Substance: INSULIN LISPRO
     Indication: DIABETES MELLITUS
     Dosage: 17 U, EACH MORNING
     Route: 058
     Dates: start: 201304

REACTIONS (4)
  - Weight decreased [Not Recovered/Not Resolved]
  - Oedema peripheral [Unknown]
  - Drug dose omission [Not Recovered/Not Resolved]
  - Neuralgia [Unknown]

NARRATIVE: CASE EVENT DATE: 20161119
